FAERS Safety Report 8618897 (Version 4)
Quarter: 2013Q1

REPORT INFORMATION
  Report Type: Spontaneous
  Country: US (occurrence: US)
  Receive Date: 20120618
  Receipt Date: 20130313
  Transmission Date: 20140127
  Serious: Yes (Life-Threatening, Hospitalization, Disabling)
  Sender: FDA-Public Use
  Company Number: US-BAYER-2012-057263

PATIENT
  Age: 42 Year
  Sex: Female
  Weight: 102.4 kg

DRUGS (6)
  1. YAZ [Suspect]
  2. YASMIN [Suspect]
  3. OCELLA [Suspect]
  4. DIOVAN [Concomitant]
     Indication: BLOOD PRESSURE ABNORMAL
     Dosage: 320/25 EVERY DAY
  5. IRON [Concomitant]
     Indication: ANAEMIA
  6. PACKED RED BLOOD CELLS [Concomitant]
     Indication: ANAEMIA

REACTIONS (8)
  - Pulmonary embolism [Recovered/Resolved]
  - Injury [None]
  - Pain [Recovered/Resolved]
  - General physical health deterioration [None]
  - Anxiety [None]
  - Anhedonia [None]
  - Emotional distress [None]
  - Pain [None]
